FAERS Safety Report 12992660 (Version 4)
Quarter: 2017Q1

REPORT INFORMATION
  Report Type: Spontaneous
  Country: US (occurrence: US)
  Receive Date: 20161202
  Receipt Date: 20170316
  Transmission Date: 20170428
  Serious: Yes (Other)
  Sender: FDA-Public Use
  Company Number: US-009507513-1611USA010861

PATIENT
  Sex: Female

DRUGS (5)
  1. ZEPATIER [Suspect]
     Active Substance: ELBASVIR\GRAZOPREVIR
     Indication: HEPATITIS C
     Dosage: 1 TABLET BY MOUTH DAILY
     Route: 048
     Dates: start: 20161028, end: 20170217
  2. PERCOCET [Concomitant]
     Active Substance: ACETAMINOPHEN\OXYCODONE HYDROCHLORIDE
     Dosage: UNK
     Route: 048
  3. VALACYCLOVIR HYDROCHLORIDE. [Concomitant]
     Active Substance: VALACYCLOVIR HYDROCHLORIDE
     Dosage: UNK
     Route: 048
  4. REBETOL [Suspect]
     Active Substance: RIBAVIRIN
     Dosage: UNK
     Route: 048
     Dates: start: 20161028, end: 20170217
  5. LITHIUM CARBONATE. [Concomitant]
     Active Substance: LITHIUM CARBONATE
     Dosage: UNK
     Route: 048

REACTIONS (12)
  - Abasia [Recovered/Resolved]
  - Insomnia [Unknown]
  - Hot flush [Unknown]
  - Vision blurred [Unknown]
  - Influenza [Unknown]
  - Nausea [Unknown]
  - Syncope [Unknown]
  - Back disorder [Unknown]
  - Diarrhoea [Unknown]
  - Arthritis [Unknown]
  - Pruritus [Unknown]
  - Fatigue [Unknown]
